FAERS Safety Report 5335178-9 (Version None)
Quarter: 2007Q2

REPORT INFORMATION
  Report Type: 
  Country: None (occurrence: None)
  Receive Date: 20070525
  Receipt Date: 20070515
  Transmission Date: 20071010
  Serious: Yes (Hospitalization, Other)
  Sender: FDA-Public Use
  Company Number: US-PFIZER INC-2005106633

PATIENT
  Sex: Female
  Weight: 64.9 kg

DRUGS (6)
  1. XALATAN [Suspect]
     Indication: GLAUCOMA
     Route: 047
  2. BEXTRA [Suspect]
     Indication: RHEUMATOID ARTHRITIS
  3. TYLENOL [Concomitant]
  4. GOLD [Concomitant]
  5. HYDROCHLOROTHIAZIDE [Concomitant]
  6. INDERAL [Concomitant]

REACTIONS (8)
  - DISEASE PROGRESSION [None]
  - DRY EYE [None]
  - GLAUCOMA [None]
  - HYPOAESTHESIA [None]
  - KNEE ARTHROPLASTY [None]
  - PERIPHERAL NERVE INJURY [None]
  - THERAPEUTIC RESPONSE UNEXPECTED [None]
  - TIBIA FRACTURE [None]
